FAERS Safety Report 5476840-7 (Version None)
Quarter: 2007Q4

REPORT INFORMATION
  Report Type: 
  Country: None (occurrence: None)
  Receive Date: 20071004
  Receipt Date: 20070921
  Transmission Date: 20080405
  Serious: Yes (Life-Threatening, Hospitalization)
  Sender: FDA-Public Use
  Company Number: US-ROCHE-516530

PATIENT
  Sex: Male

DRUGS (3)
  1. XELODA [Suspect]
     Indication: COLON CANCER
     Dosage: PATIENT ON A 2 WEEKS ON AND 2 WEEKS OFF CYCLE
     Route: 065
     Dates: start: 20070501, end: 20070801
  2. DILAUDID [Concomitant]
  3. OXYCONTIN [Concomitant]

REACTIONS (3)
  - COLORECTAL CANCER METASTATIC [None]
  - FATIGUE [None]
  - RECTAL ABSCESS [None]
